FAERS Safety Report 9062566 (Version 2)
Quarter: 2013Q3

REPORT INFORMATION
  Report Type: Report from Study
  Country: BR (occurrence: BR)
  Receive Date: 20130128
  Receipt Date: 20130731
  Transmission Date: 20140515
  Serious: Yes (Other)
  Sender: FDA-Public Use
  Company Number: BR-AMGEN-BRACT2011068854

PATIENT
  Age: 56 Year
  Sex: Female
  Weight: 65 kg

DRUGS (13)
  1. ETANERCEPT [Suspect]
     Indication: RHEUMATOID ARTHRITIS
     Dosage: 50 MG, QWK
     Route: 058
     Dates: start: 2008, end: 201212
  2. ETANERCEPT [Suspect]
     Dosage: UNK
     Route: 065
     Dates: start: 20081204, end: 201201
  3. ETANERCEPT [Suspect]
     Dosage: 50 MG, ONCE WEEKLY
     Route: 058
     Dates: start: 201201
  4. METHOTREXATE [Concomitant]
     Dosage: 25 MG, ONCE WEEKLY
  5. PREDNISONE [Concomitant]
     Dosage: STRENGTH 2.5 MG
  6. PIROXICAM [Concomitant]
     Dosage: STRENGTH 10MG
  7. FOLIC ACID [Concomitant]
     Dosage: STRENGTH 0.5MG
  8. COLECALCIFEROL [Concomitant]
     Dosage: UNK
  9. OMEPRAZOLE [Concomitant]
     Dosage: STRENGTH 20MG
  10. CAPTOPRIL [Concomitant]
     Indication: BLOOD PRESSURE INCREASED
     Dosage: 25MG  (6 TABLETS OR CAPSULES (25MG EACH) A DAY)
  11. CALCIUM [Concomitant]
     Dosage: UNK
  12. ALENDRONATE SODIUM [Concomitant]
     Dosage: UNK
  13. RANITIDINE [Concomitant]
     Dosage: UNK

REACTIONS (9)
  - Skin burning sensation [Unknown]
  - Mass [Not Recovered/Not Resolved]
  - Pain [Unknown]
  - Gait disturbance [Unknown]
  - Rheumatoid arthritis [Unknown]
  - Rash macular [Unknown]
  - Pruritus [Unknown]
  - Drug ineffective [Unknown]
  - Injection site pain [Unknown]
